FAERS Safety Report 24087589 (Version 1)
Quarter: 2024Q3

REPORT INFORMATION
  Report Type: Report from Study
  Country: US (occurrence: US)
  Receive Date: 20240714
  Receipt Date: 20240714
  Transmission Date: 20241017
  Serious: Yes (Other)
  Sender: ABBVIE
  Company Number: US-ABBVIE-5837264

PATIENT
  Sex: Male
  Weight: 76 kg

DRUGS (3)
  1. VENCLEXTA [Suspect]
     Active Substance: VENETOCLAX
     Indication: Myelodysplastic syndrome
     Dosage: BY MOUTH WITH FILTERED WATER, ONCE A DAY AT THE SAME TIME, FURTHER? EVERY DAY, AFTER HE EATS BREA...
     Route: 048
     Dates: start: 202307
  2. VENCLEXTA [Suspect]
     Active Substance: VENETOCLAX
     Indication: Myelodysplastic syndrome
     Dosage: Y MOUTH WITH FILTERED WATER, ONCE A DAY AT THE SAME TIME, FURTHER? EVERY DAY, AFTER HE EATS BREAK...
     Route: 048
  3. VENCLEXTA [Suspect]
     Active Substance: VENETOCLAX
     Indication: Myelodysplastic syndrome
     Dosage: Y MOUTH WITH FILTERED WATER, ONCE A DAY AT THE SAME TIME, FURTHER? EVERY DAY, AFTER HE EATS BREAK...
     Route: 048
     Dates: start: 202306

REACTIONS (5)
  - Platelet transfusion [Unknown]
  - Transfusion [Unknown]
  - Fatigue [Not Recovered/Not Resolved]
  - Off label use [Not Recovered/Not Resolved]
  - Poor quality sleep [Unknown]

NARRATIVE: CASE EVENT DATE: 20230101
